FAERS Safety Report 18146519 (Version 1)
Quarter: 2020Q3

REPORT INFORMATION
  Report Type: Report from Study
  Country: GB (occurrence: GB)
  Receive Date: 20200813
  Receipt Date: 20200813
  Transmission Date: 20201103
  Serious: Yes (Other)
  Sender: FDA-Public Use
  Company Number: GB-JNJFOC-20200725720

PATIENT
  Age: 26 Year
  Sex: Female

DRUGS (1)
  1. STELARA [Suspect]
     Active Substance: USTEKINUMAB
     Indication: CROHN^S DISEASE
     Route: 042
     Dates: start: 20200608

REACTIONS (6)
  - Fatigue [Recovering/Resolving]
  - Burning sensation [Not Recovered/Not Resolved]
  - Breast abscess [Not Recovered/Not Resolved]
  - Pain [Recovering/Resolving]
  - Secretion discharge [Not Recovered/Not Resolved]
  - Stoma site extravasation [Not Recovered/Not Resolved]

NARRATIVE: CASE EVENT DATE: 202006
